FAERS Safety Report 21496491 (Version 2)
Quarter: 2022Q4

REPORT INFORMATION
  Report Type: Spontaneous
  Country: JP (occurrence: JP)
  Receive Date: 20221022
  Receipt Date: 20221109
  Transmission Date: 20230113
  Serious: Yes (Other)
  Sender: FDA-Public Use
  Company Number: JP-Accord-283313

PATIENT
  Age: 81 Year
  Sex: Female
  Weight: 43 kg

DRUGS (7)
  1. DEXMEDETOMIDINE HYDROCHLORIDE [Suspect]
     Active Substance: DEXMEDETOMIDINE HYDROCHLORIDE
     Indication: Postoperative analgesia
     Dosage: 0.46 UG/KG/H
     Route: 042
  2. FENTANYL [Concomitant]
     Active Substance: FENTANYL
     Indication: Postoperative analgesia
     Dosage: 100 UG/H
  3. REMIFENTANIL [Concomitant]
     Active Substance: REMIFENTANIL
     Indication: General anaesthesia
     Dosage: CONTINUOUS INTRAVENOUS INFUSION, 0.3 UG/ KG/MIN
     Route: 042
  4. PROPOFOL [Concomitant]
     Active Substance: PROPOFOL
     Indication: General anaesthesia
     Dosage: BOLUS OF PROPOFOL 60 MG
  5. ROCURONIUM [Concomitant]
     Active Substance: ROCURONIUM BROMIDE
     Indication: General anaesthesia
  6. SEVOFLURANE [Concomitant]
     Active Substance: SEVOFLURANE
     Dosage: 1%-2% WITH AIR AND OXYGEN (FIO2 OF 40%)
  7. REMIFENTANIL [Concomitant]
     Active Substance: REMIFENTANIL
     Indication: General anaesthesia
     Dosage: CONTINUOUS INFUSION, 0.1-0.2 LG/KG/MIN

REACTIONS (3)
  - Bradycardia [Unknown]
  - Hypotension [Unknown]
  - Arteriospasm coronary [Unknown]
